FAERS Safety Report 17827625 (Version 1)
Quarter: 2020Q2

REPORT INFORMATION
  Report Type: Spontaneous
  Country: US (occurrence: US)
  Receive Date: 20200527
  Receipt Date: 20200527
  Transmission Date: 20200714
  Serious: No
  Sender: FDA-Public Use
  Company Number: US-MIKART, LLC-2084197

PATIENT
  Sex: Female

DRUGS (1)
  1. HYDROCODONE BITARTRATE AND ACETAMINOPHEN [Suspect]
     Active Substance: ACETAMINOPHEN\HYDROCODONE BITARTRATE
     Route: 048

REACTIONS (8)
  - Nausea [Unknown]
  - Blood pressure increased [Unknown]
  - Insomnia [Unknown]
  - Withdrawal syndrome [Unknown]
  - Vomiting [Unknown]
  - Rhinorrhoea [Unknown]
  - Tremor [Unknown]
  - Hyperhidrosis [Unknown]
